FAERS Safety Report 6013202-8 (Version None)
Quarter: 2008Q4

REPORT INFORMATION
  Report Type: 
  Country: None (occurrence: None)
  Receive Date: 20081219
  Receipt Date: 20081215
  Transmission Date: 20090506
  Serious: Yes (Other)
  Sender: FDA-Public Use
  Company Number: US-ELI_LILLY_AND_COMPANY-US200811003074

PATIENT
  Sex: Male
  Weight: 92.971 kg

DRUGS (6)
  1. BYETTA [Suspect]
     Dosage: 5 UG, UNKNOWN
     Route: 058
     Dates: end: 20080123
  2. BYETTA [Suspect]
     Dosage: 10 UG, UNKNOWN
     Route: 058
     Dates: start: 20080124
  3. ACTOS [Concomitant]
     Dosage: UNK, UNKNOWN
     Route: 065
  4. LISINOPRIL [Concomitant]
     Dosage: UNK, UNKNOWN
     Route: 065
  5. METFORMIN HCL [Concomitant]
     Dosage: UNK, UNKNOWN
     Route: 065
  6. VYTORIN [Concomitant]
     Dosage: UNK, UNKNOWN
     Route: 065

REACTIONS (1)
  - PANCREATITIS [None]
